FAERS Safety Report 6572195-5 (Version None)
Quarter: 2010Q1

REPORT INFORMATION
  Report Type: 
  Country: None (occurrence: None)
  Receive Date: 20100205
  Receipt Date: 20100127
  Transmission Date: 20100710
  Serious: Yes (Other)
  Sender: FDA-Public Use
  Company Number: PHHY2010BR05610

PATIENT
  Sex: Female

DRUGS (1)
  1. ELIDEL [Suspect]
     Dosage: 15 G, UNK
     Dates: start: 20091224

REACTIONS (1)
  - DYSENTERY [None]
